FAERS Safety Report 21570945 (Version 3)
Quarter: 2023Q4

REPORT INFORMATION
  Report Type: Report from Study
  Country: US (occurrence: US)
  Receive Date: 20221109
  Receipt Date: 20231130
  Transmission Date: 20240110
  Serious: Yes (Death, Other)
  Sender: FDA-Public Use
  Company Number: US-ASTELLAS-2022US039895

PATIENT
  Age: 88 Year
  Sex: Male

DRUGS (1)
  1. ENZALUTAMIDE [Suspect]
     Active Substance: ENZALUTAMIDE
     Indication: Prostate cancer
     Dosage: 80 MG, TWICE DAILY (MG (40 MG X 2 TABLETS))
     Route: 065
     Dates: start: 20180205

REACTIONS (3)
  - Arteriosclerosis [Fatal]
  - Hallucination [Unknown]
  - Off label use [Unknown]

NARRATIVE: CASE EVENT DATE: 20180205
